FAERS Safety Report 4861499-X (Version None)
Quarter: 2005Q4

REPORT INFORMATION
  Report Type: 
  Country: None (occurrence: None)
  Receive Date: 20051129
  Receipt Date: 20050405
  Transmission Date: 20060501
  Serious: Yes (Other)
  Sender: FDA-Public Use
  Company Number: WAES 0504USA00714

PATIENT
  Age: 66 Year
  Sex: Female

DRUGS (8)
  1. FOSAMAX [Suspect]
     Indication: OSTEOPOROSIS
     Dosage: 70MG/WKY/PO
     Route: 048
     Dates: start: 20011001, end: 20031001
  2. CELEBREX [Concomitant]
  3. SYNTHROID [Concomitant]
  4. ZOCOR [Concomitant]
  5. FOLIC ACID [Concomitant]
  6. METHOTREXATE [Concomitant]
  7. PREDNISONE [Concomitant]
  8. SULFASALAZINE [Concomitant]

REACTIONS (2)
  - OESOPHAGEAL STENOSIS [None]
  - OESOPHAGEAL ULCER HAEMORRHAGE [None]
